FAERS Safety Report 16119345 (Version 1)
Quarter: 2019Q1

REPORT INFORMATION
  Report Type: Spontaneous
  Country: US (occurrence: US)
  Receive Date: 20190326
  Receipt Date: 20190326
  Transmission Date: 20190418
  Serious: No
  Sender: FDA-Public Use
  Company Number: US-TEVA-2019-US-1018896

PATIENT
  Sex: Male

DRUGS (1)
  1. CLONAZEPAM TABLETS TEVA [Suspect]
     Active Substance: CLONAZEPAM
     Indication: ANXIETY
     Route: 065

REACTIONS (2)
  - Panic attack [Recovering/Resolving]
  - Drug ineffective [Unknown]
